FAERS Safety Report 20065710 (Version 1)
Quarter: 2021Q4

REPORT INFORMATION
  Report Type: Spontaneous
  Country: US (occurrence: US)
  Receive Date: 20211113
  Receipt Date: 20211113
  Transmission Date: 20220303
  Serious: Yes (Death)
  Sender: FDA-Public Use
  Company Number: US-NOVARTISPH-NVSC2021US258574

PATIENT
  Age: 55 Year
  Sex: Male

DRUGS (2)
  1. RANITIDINE [Suspect]
     Active Substance: RANITIDINE
     Indication: Gastrointestinal haemorrhage
     Dosage: 300 MG, QD
     Route: 065
     Dates: end: 201812
  2. RANITIDINE [Suspect]
     Active Substance: RANITIDINE
     Indication: Gastrointestinal haemorrhage
     Dosage: 300 MG, QD
     Route: 065
     Dates: end: 201812

REACTIONS (2)
  - Prostate cancer [Fatal]
  - Product use in unapproved indication [Unknown]

NARRATIVE: CASE EVENT DATE: 20080101
